FAERS Safety Report 5341136-0 (Version None)
Quarter: 2007Q2

REPORT INFORMATION
  Report Type: 
  Country: None (occurrence: None)
  Receive Date: 20070405
  Receipt Date: 20070108
  Transmission Date: 20071010
  Serious: No
  Sender: FDA-Public Use
  Company Number: US200701001359

PATIENT
  Age: 38 Year
  Sex: Female

DRUGS (5)
  1. CYMBALTA [Suspect]
     Indication: NEUROPATHY
     Dosage: SEE IMAG
     Dates: start: 20061120, end: 20061205
  2. CYMBALTA [Suspect]
     Indication: NEUROPATHY
     Dosage: SEE IMAG
     Dates: start: 20061206
  3. CYMBALTA [Suspect]
  4. DYAZIDE /CAN/ (HYDROCHLOROTHIAZIDE, TRIAMTERENE) [Concomitant]
  5. LEVOTHYROXINE SODIUM [Concomitant]

REACTIONS (5)
  - ABDOMINAL DISTENSION [None]
  - DYSURIA [None]
  - LOSS OF LIBIDO [None]
  - OEDEMA PERIPHERAL [None]
  - WEIGHT INCREASED [None]
